FAERS Safety Report 10007127 (Version 2)
Quarter: 2014Q1

REPORT INFORMATION
  Report Type: Spontaneous
  Country: US (occurrence: US)
  Receive Date: 20140313
  Receipt Date: 20140318
  Transmission Date: 20141002
  Serious: No
  Sender: FDA-Public Use
  Company Number: US-PFIZER INC-2014068729

PATIENT
  Sex: Female

DRUGS (1)
  1. XALKORI [Suspect]
     Dosage: UNK
     Dates: start: 201402

REACTIONS (2)
  - Dysphagia [Unknown]
  - Intentional drug misuse [Unknown]
